FAERS Safety Report 12851102 (Version 12)
Quarter: 2018Q2

REPORT INFORMATION
  Report Type: Report from Study
  Country: JP (occurrence: JP)
  Receive Date: 20161015
  Receipt Date: 20180627
  Transmission Date: 20180711
  Serious: Yes (Hospitalization)
  Sender: FDA-Public Use
  Company Number: JP-ROCHE-1840390

PATIENT
  Age: 72 Year
  Sex: Male
  Weight: 51.7 kg

DRUGS (33)
  1. NOVORAPID [Concomitant]
     Active Substance: INSULIN ASPART
     Indication: DIABETES MELLITUS
     Route: 065
     Dates: end: 20160930
  2. FENTOS (JAPAN) [Concomitant]
     Active Substance: FENTANYL
     Indication: CANCER PAIN
     Route: 065
     Dates: start: 20160819
  3. DOMPERIDONE [Concomitant]
     Active Substance: DOMPERIDONE
     Indication: PROPHYLAXIS
     Route: 065
     Dates: start: 20160927, end: 20161019
  4. POTACOL R [Concomitant]
     Indication: PROPHYLAXIS AGAINST DEHYDRATION
     Route: 065
     Dates: start: 20161008, end: 20161009
  5. PROCHLORPERAZINE MALEATE. [Concomitant]
     Active Substance: PROCHLORPERAZINE MALEATE
     Indication: NAUSEA
     Route: 065
     Dates: start: 20161011, end: 20161019
  6. PEMETREXED. [Suspect]
     Active Substance: PEMETREXED
     Indication: NON-SMALL CELL LUNG CANCER STAGE IV
     Dosage: ON 27/SEP/2016, HE RECEIVED THE MOST RECENT DOSE PEMETREXED 800 MG PRIOR TO THE ONSET OF EVENTS.?STA
     Route: 042
     Dates: start: 20160927
  7. TAKELDA [Concomitant]
     Active Substance: ASPIRIN\LANSOPRAZOLE
     Indication: THROMBOSIS PROPHYLAXIS
     Dosage: COMBINATION TABLETS
     Route: 065
     Dates: end: 20161019
  8. LOXOPROFEN SODIUM HYDRATE [Concomitant]
     Active Substance: LOXOPROFEN SODIUM DIHYDRATE
     Indication: CANCER PAIN
  9. SENNOSIDES A + B [Concomitant]
     Active Substance: SENNOSIDES A AND B
     Indication: CONSTIPATION
     Dosage: SENNOSIDE A B CALCIUM
     Route: 065
     Dates: start: 20161008, end: 20161010
  10. NEW LECICARBON [Concomitant]
     Active Substance: SODIUM BICARBONATE\SODIUM PHOSPHATE, MONOBASIC
     Indication: CONSTIPATION
     Route: 065
     Dates: start: 20161010
  11. GLUCOSE [Concomitant]
     Active Substance: DEXTROSE
     Indication: DIABETES MELLITUS
     Route: 065
     Dates: start: 20160927, end: 20160929
  12. URSODEOXYCHOLIC ACID [Concomitant]
     Active Substance: URSODIOL
     Indication: HEPATIC FUNCTION ABNORMAL
     Route: 065
     Dates: end: 20161019
  13. REPLAS [Concomitant]
     Active Substance: DEXTROSE\SODIUM CHLORIDE\SODIUM LACTATE
     Indication: NAUSEA
     Route: 065
     Dates: start: 20161002, end: 20161003
  14. CARBOPLATIN. [Suspect]
     Active Substance: CARBOPLATIN
     Indication: NON-SMALL CELL LUNG CANCER STAGE IV
     Dosage: ON 27/SEP/2016, HE RECEIVED THE MOST RECENT DOSE OF CARBOPLATIN 473 MG PRIOR TO THE ONSET OF EVENTS.
     Route: 042
     Dates: start: 20160927
  15. PRAVASTATIN SODIUM. [Concomitant]
     Active Substance: PRAVASTATIN SODIUM
     Indication: DYSLIPIDAEMIA
     Route: 065
     Dates: end: 20161019
  16. TULOBUTEROL [Concomitant]
     Active Substance: TULOBUTEROL
     Indication: NON-SMALL CELL LUNG CANCER STAGE IV
     Route: 065
     Dates: start: 20160819
  17. GRANISETRON HYDROCHLORIDE. [Concomitant]
     Active Substance: GRANISETRON HYDROCHLORIDE
     Indication: PROPHYLAXIS
     Route: 065
     Dates: start: 20160927, end: 20160927
  18. BASEN (JAPAN) [Concomitant]
     Indication: DIABETES MELLITUS
     Dosage: OD
     Route: 065
     Dates: end: 20161005
  19. KARY UNI [Concomitant]
     Active Substance: PIRENOXINE
     Indication: CATARACT
     Route: 065
     Dates: end: 20161019
  20. SEROTONE [Concomitant]
     Active Substance: AZASETRON HYDROCHLORIDE
     Indication: NAUSEA
     Route: 065
     Dates: start: 20161001, end: 20161019
  21. AZUNOL OINTMENT [Concomitant]
     Indication: PENILE ERYTHEMA
     Route: 065
     Dates: start: 20160930, end: 20160930
  22. METFORMIN HYDROCHLORIDE. [Concomitant]
     Active Substance: METFORMIN HYDROCHLORIDE
     Indication: DIABETES MELLITUS
     Route: 065
     Dates: end: 20161005
  23. AMBROXOL HYDROCHLORIDE [Concomitant]
     Active Substance: AMBROXOL HYDROCHLORIDE
     Indication: NON-SMALL CELL LUNG CANCER STAGE IV
     Dosage: OD
     Route: 065
     Dates: start: 20160819, end: 20161019
  24. MAGNESIUM OXIDE. [Concomitant]
     Active Substance: MAGNESIUM OXIDE
     Indication: CONSTIPATION PROPHYLAXIS
     Route: 065
     Dates: start: 20160926, end: 20161019
  25. REPLAS [Concomitant]
     Active Substance: DEXTROSE\SODIUM CHLORIDE\SODIUM LACTATE
     Indication: PROPHYLAXIS AGAINST DEHYDRATION
     Route: 065
     Dates: start: 20161008, end: 20161009
  26. FRUCTLACT [Concomitant]
     Indication: NAUSEA
     Route: 065
     Dates: start: 20161005, end: 20161007
  27. FRUCTLACT [Concomitant]
     Indication: PROPHYLAXIS
     Route: 065
     Dates: start: 20161019, end: 20161019
  28. HYDROXOCOBALAMIN ACETATE. [Concomitant]
     Active Substance: HYDROXOCOBALAMIN ACETATE
     Indication: PROPHYLAXIS
     Route: 065
     Dates: start: 20160921, end: 20160921
  29. ATEZOLIZUMAB. [Suspect]
     Active Substance: ATEZOLIZUMAB
     Indication: NON-SMALL CELL LUNG CANCER STAGE IV
     Dosage: ON 27/SEP/2016, HE RECEIVED THE MOST RECENT DOSE ATEZOLIZUMAB 1200 MG (UNIT AS PER STUDY PROTOCOL) P
     Route: 042
     Dates: start: 20160927
  30. LEVOFLOXACIN HEMIHYDRATE [Concomitant]
     Active Substance: LEVOFLOXACIN
     Indication: INFECTION PROPHYLAXIS
     Route: 065
     Dates: start: 20161005, end: 20161019
  31. AZUNOL GARGLE LIQUID [Concomitant]
     Indication: STOMATITIS
     Route: 065
     Dates: start: 20161005, end: 20161005
  32. OXINORM (JAPAN) [Concomitant]
     Active Substance: OXYCODONE HYDROCHLORIDE
     Indication: CANCER PAIN
     Route: 065
     Dates: start: 20160819
  33. NEXIUM [Concomitant]
     Active Substance: ESOMEPRAZOLE MAGNESIUM
     Indication: GASTRITIS PROPHYLAXIS
     Route: 065
     Dates: start: 20160819, end: 20161019

REACTIONS (2)
  - Bone marrow failure [Recovered/Resolved]
  - Pneumonia aspiration [Not Recovered/Not Resolved]

NARRATIVE: CASE EVENT DATE: 20161003
